FAERS Safety Report 21798410 (Version 1)
Quarter: 2022Q4

REPORT INFORMATION
  Report Type: Spontaneous
  Country: US (occurrence: None)
  Receive Date: 20221229
  Receipt Date: 20221229
  Transmission Date: 20230112
  Serious: No
  Sender: FDA-Public Use
  Company Number: None

PATIENT
  Age: 58 Year
  Sex: Male

DRUGS (1)
  1. H.P. ACTHAR [Suspect]
     Active Substance: CORTICOTROPIN
     Indication: Rheumatoid arthritis
     Dosage: OTHER STRENGTH : 80UNIT/ML 5ML;?FREQUENCY : TWICE A WEEK;?
     Route: 058
     Dates: start: 202211

REACTIONS (2)
  - Rheumatoid arthritis [None]
  - Pain [None]
